FAERS Safety Report 9988094 (Version 1)
Quarter: 2014Q1

REPORT INFORMATION
  Report Type: Spontaneous
  Country: US (occurrence: US)
  Receive Date: 20140308
  Receipt Date: 20140308
  Transmission Date: 20141002
  Serious: Yes (Hospitalization, Other)
  Sender: FDA-Public Use
  Company Number: US-009507513-1402USA013481

PATIENT
  Sex: Male

DRUGS (6)
  1. ALBUTEROL SULFATE [Suspect]
     Indication: CHRONIC OBSTRUCTIVE PULMONARY DISEASE
     Route: 055
  2. PROVENTIL [Suspect]
     Indication: CHRONIC OBSTRUCTIVE PULMONARY DISEASE
     Route: 055
  3. VENTOLIN (ALBUTEROL SULFATE) [Concomitant]
     Indication: CHRONIC OBSTRUCTIVE PULMONARY DISEASE
     Dosage: UNK
     Route: 055
  4. RELPAX [Concomitant]
  5. TYLENOL [Concomitant]
  6. CODEINE [Concomitant]

REACTIONS (48)
  - Myocardial infarction [Unknown]
  - Dizziness [Unknown]
  - Feeling abnormal [Unknown]
  - Staphylococcal skin infection [Unknown]
  - Penile discharge [Unknown]
  - Osteomyelitis [Not Recovered/Not Resolved]
  - Lymphoedema [Not Recovered/Not Resolved]
  - Local swelling [Not Recovered/Not Resolved]
  - Fluid retention [Not Recovered/Not Resolved]
  - Gait disturbance [Not Recovered/Not Resolved]
  - Fall [Not Recovered/Not Resolved]
  - Contusion [Not Recovered/Not Resolved]
  - Pain [Unknown]
  - Poor quality sleep [Unknown]
  - Nerve injury [Unknown]
  - Bladder disorder [Unknown]
  - Crepitations [Unknown]
  - Skin haemorrhage [Unknown]
  - Splinter [Unknown]
  - Chest pain [Unknown]
  - Emphysema [Unknown]
  - Bladder cancer [Unknown]
  - Cellulitis [Unknown]
  - Meningitis [Unknown]
  - Screaming [Unknown]
  - Intervertebral disc degeneration [Unknown]
  - Hepatic neoplasm [Unknown]
  - Bipolar disorder [Unknown]
  - Wound [Unknown]
  - Wound secretion [Unknown]
  - Migraine [Unknown]
  - Eyelid oedema [Not Recovered/Not Resolved]
  - Hyperhidrosis [Not Recovered/Not Resolved]
  - Infection [Not Recovered/Not Resolved]
  - Rash macular [Unknown]
  - Pain of skin [Unknown]
  - Skin induration [Unknown]
  - Frequent bowel movements [Unknown]
  - Arterial occlusive disease [Unknown]
  - Coronary artery bypass [Unknown]
  - Fatigue [Unknown]
  - Muscle spasms [Unknown]
  - Spinal fracture [Unknown]
  - Cervical vertebral fracture [Unknown]
  - Skin exfoliation [Unknown]
  - Gout [Unknown]
  - Drug implantation [Unknown]
  - Diabetes mellitus [Unknown]
